FAERS Safety Report 10592779 (Version 2)
Quarter: 2014Q4

REPORT INFORMATION
  Report Type: Spontaneous
  Country: GH (occurrence: GH)
  Receive Date: 20141119
  Receipt Date: 20141126
  Transmission Date: 20150529
  Serious: Yes (Death, Other)
  Sender: FDA-Public Use
  Company Number: GH-PFIZER INC-2014313447

PATIENT
  Age: 70 Year
  Sex: Male
  Weight: 70 kg

DRUGS (2)
  1. ZITHROMAX [Suspect]
     Active Substance: AZITHROMYCIN DIHYDRATE
     Indication: PNEUMONIA
     Dosage: 500 MG, STAT (AT ONCE)
     Route: 042
     Dates: start: 20141030, end: 20141030
  2. AMOXICILLIN SODIUM/CLAVULANATE POTASSIUM [Concomitant]
     Indication: PNEUMONIA
     Dosage: 1.2 G, STAT (AT ONCE)
     Route: 040
     Dates: start: 20141030, end: 20141030

REACTIONS (4)
  - Restlessness [Fatal]
  - Dyspnoea [Fatal]
  - Left ventricular hypertrophy [Unknown]
  - Tachycardia [Unknown]

NARRATIVE: CASE EVENT DATE: 20141030
